FAERS Safety Report 4498638-9 (Version None)
Quarter: 2004Q3

REPORT INFORMATION
  Report Type: 
  Country: None (occurrence: None)
  Receive Date: 20040927
  Receipt Date: 20040614
  Transmission Date: 20050211
  Serious: No
  Sender: FDA-Public Use
  Company Number: USA040670118

PATIENT
  Age: 27 Year
  Sex: Male
  Weight: 101 kg

DRUGS (1)
  1. STRATTERA [Suspect]
     Indication: DISTURBANCE IN ATTENTION
     Dosage: 80 MG DAY
     Dates: start: 20040501

REACTIONS (4)
  - EAR DISCOMFORT [None]
  - IMPATIENCE [None]
  - IRRITABILITY [None]
  - STRESS SYMPTOMS [None]
